FAERS Safety Report 5245662-4 (Version None)
Quarter: 2007Q1

REPORT INFORMATION
  Report Type: 
  Country: None (occurrence: None)
  Receive Date: 20070223
  Receipt Date: 20070213
  Transmission Date: 20070707
  Serious: Yes (Other)
  Sender: FDA-Public Use
  Company Number: DE-PFIZER INC-2007012084

PATIENT
  Sex: Male

DRUGS (3)
  1. LYRICA [Suspect]
     Indication: RESTLESSNESS
     Route: 048
  2. TAFIL [Interacting]
  3. FLUCTIN [Concomitant]

REACTIONS (2)
  - CONVULSION [None]
  - DRUG INTERACTION [None]
